FAERS Safety Report 4279571-4 (Version None)
Quarter: 2004Q1

REPORT INFORMATION
  Report Type: 
  Country: None (occurrence: None)
  Receive Date: 20040123
  Receipt Date: 20040115
  Transmission Date: 20041129
  Serious: Yes (Death)
  Sender: FDA-Public Use
  Company Number: UIS-JNJF0C-20040103022

PATIENT
  Age: 85 Year
  Sex: Female

DRUGS (1)
  1. DURAGESIC [Suspect]
     Indication: CANCER PAIN
     Dosage: 1 IN 72 HOUR, TRANSDERMAL
     Route: 062
     Dates: start: 20031001, end: 20031001

REACTIONS (1)
  - DEATH [None]
